FAERS Safety Report 20626878 (Version 1)
Quarter: 2022Q1

REPORT INFORMATION
  Report Type: Spontaneous
  Country: PR (occurrence: None)
  Receive Date: 20220322
  Receipt Date: 20220322
  Transmission Date: 20220423
  Serious: Yes (Other)
  Sender: FDA-Public Use
  Company Number: None

PATIENT
  Age: 65 Year
  Sex: Female
  Weight: 108.9 kg

DRUGS (2)
  1. EMGALITY [Suspect]
     Active Substance: GALCANEZUMAB-GNLM
     Indication: Migraine
     Dosage: FREQUENCY : MONTHLY;?
     Route: 058
     Dates: start: 20211126, end: 20220311
  2. EMGALITY [Concomitant]
     Active Substance: GALCANEZUMAB-GNLM
     Dates: start: 20211126, end: 20220311

REACTIONS (5)
  - Inflammation [None]
  - Facial discomfort [None]
  - Musculoskeletal discomfort [None]
  - Limb discomfort [None]
  - Limb discomfort [None]

NARRATIVE: CASE EVENT DATE: 20220311
